FAERS Safety Report 15362971 (Version 2)
Quarter: 2018Q4

REPORT INFORMATION
  Report Type: Spontaneous
  Country: GB (occurrence: GB)
  Receive Date: 20180907
  Receipt Date: 20181011
  Transmission Date: 20190204
  Serious: Yes (Death, Hospitalization, Other)
  Sender: FDA-Public Use
  Company Number: GB-SA-2018SA183871

PATIENT
  Age: 47 Year
  Sex: Female

DRUGS (18)
  1. METHYLPREDNISOLONE. [Interacting]
     Active Substance: METHYLPREDNISOLONE
     Indication: IMMUNOSUPPRESSANT DRUG THERAPY
  2. MEROPENEM. [Interacting]
     Active Substance: MEROPENEM
     Indication: PROPHYLAXIS
     Dosage: UNK
     Route: 065
  3. VANCOMYCIN [Interacting]
     Active Substance: VANCOMYCIN
     Indication: PROPHYLAXIS
     Dosage: UNK
     Route: 065
  4. SULFAMETHOXAZOLE/TRIMETHOPRIM [Interacting]
     Active Substance: SULFAMETHOXAZOLE\TRIMETHOPRIM
     Indication: PROPHYLAXIS
     Dosage: 480 MG, THREE TIMES A WEEK
     Route: 065
  5. METHYLPREDNISOLONE. [Interacting]
     Active Substance: METHYLPREDNISOLONE
     Dosage: HIGH DOSE GOR GVHD
  6. AMPHOTERICIN B. [Interacting]
     Active Substance: AMPHOTERICIN B
     Indication: PROPHYLAXIS
     Dosage: 1 MG/KG, QD
  7. ALEMTUZUMAB [Interacting]
     Active Substance: ALEMTUZUMAB
     Dosage: FOR GVHD
  8. MICAFUNGIN. [Concomitant]
     Active Substance: MICAFUNGIN SODIUM
     Dosage: 100 MG, BID
  9. PREDNISOLONE. [Interacting]
     Active Substance: PREDNISOLONE
     Indication: IMMUNOSUPPRESSION
     Dosage: UNK
     Route: 065
  10. MICAFUNGIN. [Concomitant]
     Active Substance: MICAFUNGIN SODIUM
     Indication: CANDIDA INFECTION
     Dosage: 100 MG, QD
  11. ALEMTUZUMAB [Suspect]
     Active Substance: ALEMTUZUMAB
     Indication: IMMUNOSUPPRESSANT DRUG THERAPY
  12. BASILIXIMAB [Suspect]
     Active Substance: BASILIXIMAB
     Indication: GRAFT VERSUS HOST DISEASE
  13. ACICLOVIR [Interacting]
     Active Substance: ACYCLOVIR
     Indication: PROPHYLAXIS
     Dosage: UNK
     Route: 065
  14. TACROLIMUS. [Interacting]
     Active Substance: TACROLIMUS
     Indication: IMMUNOSUPPRESSION
     Dosage: UNK
     Route: 065
  15. AMPHOTERICIN B. [Interacting]
     Active Substance: AMPHOTERICIN B
     Indication: CANDIDA INFECTION
     Dosage: 3 MG/KG, QD
  16. VORICONAZOLE. [Interacting]
     Active Substance: VORICONAZOLE
     Indication: CANDIDA SEPSIS
     Dosage: UNK
     Route: 065
  17. VORICONAZOLE. [Interacting]
     Active Substance: VORICONAZOLE
     Indication: ANTIBIOTIC PROPHYLAXIS
  18. CYCLOSPORINE. [Interacting]
     Active Substance: CYCLOSPORINE
     Indication: IMMUNOSUPPRESSION
     Dosage: UNK
     Route: 065

REACTIONS (19)
  - Sepsis [Fatal]
  - Pyrexia [Fatal]
  - Staphylococcal infection [Fatal]
  - Systemic candida [Fatal]
  - Cerebral infarction [Unknown]
  - Rash maculo-papular [Fatal]
  - Cerebral haemorrhage [Unknown]
  - Off label use [Unknown]
  - Acute graft versus host disease [Not Recovered/Not Resolved]
  - Dysarthria [Unknown]
  - Drug interaction [Unknown]
  - Drug ineffective [Unknown]
  - Bone marrow failure [Unknown]
  - Facial paralysis [Unknown]
  - Brain oedema [Unknown]
  - Drug level decreased [Unknown]
  - Mucormycosis [Fatal]
  - Enterococcal infection [Fatal]
  - Escherichia infection [Fatal]
